FAERS Safety Report 12761209 (Version 1)
Quarter: 2016Q3

REPORT INFORMATION
  Report Type: Spontaneous
  Country: PE (occurrence: PE)
  Receive Date: 20160920
  Receipt Date: 20160920
  Transmission Date: 20161109
  Serious: Yes (Hospitalization)
  Sender: FDA-Public Use
  Company Number: PE-ROCHE-1831616

PATIENT
  Age: 11 Year
  Sex: Female

DRUGS (1)
  1. PULMOZYME [Suspect]
     Active Substance: DORNASE ALFA
     Indication: SPINAL MUSCULAR ATROPHY
     Route: 042

REACTIONS (3)
  - Off label use [Unknown]
  - Sputum retention [Not Recovered/Not Resolved]
  - Muscular weakness [Not Recovered/Not Resolved]
